FAERS Safety Report 7462345-0 (Version None)
Quarter: 2011Q2

REPORT INFORMATION
  Report Type: 
  Country: None (occurrence: None)
  Receive Date: 20110506
  Receipt Date: 20110505
  Transmission Date: 20111010
  Serious: Yes (Death)
  Sender: FDA-Public Use
  Company Number: MX-PFIZER INC-2011097179

PATIENT
  Age: 85 Year
  Sex: Male

DRUGS (4)
  1. SERTRALINE HYDROCHLORIDE [Suspect]
     Dosage: UNK
  2. ALPRAZOLAM [Suspect]
     Dosage: UNK
  3. CELEBREX [Suspect]
     Indication: ARTHRITIS
     Dosage: UNK
  4. LIPITOR [Suspect]
     Dosage: UNK

REACTIONS (1)
  - DEATH [None]
